FAERS Safety Report 8476159-6 (Version None)
Quarter: 2012Q2

REPORT INFORMATION
  Report Type: 
  Country: None (occurrence: None)
  Receive Date: 20120628
  Receipt Date: 20120618
  Transmission Date: 20120825
  Serious: Yes (Hospitalization)
  Sender: FDA-Public Use
  Company Number: US-ELI_LILLY_AND_COMPANY-US201108009024

PATIENT
  Sex: Female

DRUGS (3)
  1. FORTEO [Suspect]
     Indication: OSTEOPOROSIS
     Dosage: 20 UG, QD
     Route: 065
     Dates: start: 20110519
  2. FORTEO [Suspect]
     Dosage: 20 UG, QD
  3. FORTEO [Suspect]
     Dosage: 20 UG, QD

REACTIONS (10)
  - SEPSIS [None]
  - SHOULDER OPERATION [None]
  - HEAD INJURY [None]
  - FEELING ABNORMAL [None]
  - ROAD TRAFFIC ACCIDENT [None]
  - ASTHENIA [None]
  - DRUG DOSE OMISSION [None]
  - MALAISE [None]
  - CYSTITIS [None]
  - FATIGUE [None]
